FAERS Safety Report 9761582 (Version 1)
Quarter: 2013Q3

REPORT INFORMATION
  Report Type: Spontaneous
  Country: DE (occurrence: None)
  Receive Date: 20130820
  Receipt Date: 20130820
  Transmission Date: 20140515
  Serious: Yes (Death)
  Sender: FDA-Public Use
  Company Number: 2013037094

PATIENT
  Age: 69 Year
  Sex: Female

DRUGS (11)
  1. PRIVIGEN [Suspect]
     Indication: PLASMA CELL MYELOMA
     Dosage: 10 G 1X/4 WEEKS, INFUSION RATE MIN 0.25 ML MIN MAX. 1.33 ML/ MIN, NI, 10 G TOTAL
     Route: 042
     Dates: start: 20130107
  2. MAGNESUM (MAGNESIUM) [Concomitant]
  3. SYMBICORT (BUDESONIDE) W/FORMOTEROL FUMARATE) [Concomitant]
  4. POTASSIUM (POTASSIUM) [Concomitant]
  5. L-THYROXIN (LEVOTHYROXINE SODIUM) [Concomitant]
  6. TORASEMIDE (TORASEMIDE) [Concomitant]
  7. PLATELETS, HUMAN BLOOD (PLATELETS, HUMAN BLOOD) [Concomitant]
  8. RED BLOOD CELLS, CONCENTRATED (RED BLOOD CELLS, CONCENTRATED) [Concomitant]
  9. DESFERAL (DEFEROXAMINE MESILATE) [Concomitant]
  10. PREDNISOLONE (PREDNISOLONE) [Concomitant]
  11. ZOMETA (ZOLEDRONIC ACID) [Concomitant]

REACTIONS (1)
  - Death [None]
